FAERS Safety Report 18552308 (Version 2)
Quarter: 2020Q4

REPORT INFORMATION
  Report Type: Other
  Country: CO (occurrence: CO)
  Receive Date: 20201127
  Receipt Date: 20201215
  Transmission Date: 20210114
  Serious: Yes (Other)
  Sender: FDA-Public Use
  Company Number: CO-ROCHE-2722080

PATIENT
  Age: 9 Year
  Sex: Male

DRUGS (4)
  1. BECLOMETHASONE [Concomitant]
     Active Substance: BECLOMETHASONE
     Indication: PRODUCT USED FOR UNKNOWN INDICATION
     Route: 048
  2. XOLAIR [Suspect]
     Active Substance: OMALIZUMAB
     Indication: ASTHMA
     Dosage: 300 MG, QMO
     Route: 058
     Dates: start: 20191113, end: 20200120
  3. SALBUTAMOL [Concomitant]
     Active Substance: ALBUTEROL
     Indication: PRODUCT USED FOR UNKNOWN INDICATION
     Route: 048
  4. PREDNISOLONE. [Concomitant]
     Active Substance: PREDNISOLONE
     Route: 065

REACTIONS (4)
  - Hypopnoea [Unknown]
  - Hypersensitivity [Unknown]
  - Asthmatic crisis [Recovered/Resolved]
  - Sleep apnoea syndrome [Unknown]

NARRATIVE: CASE EVENT DATE: 2020
